FAERS Safety Report 7423126-7 (Version None)
Quarter: 2011Q2

REPORT INFORMATION
  Report Type: 
  Country: None (occurrence: None)
  Receive Date: 20110419
  Receipt Date: 20110412
  Transmission Date: 20111010
  Serious: Yes (Life-Threatening)
  Sender: FDA-Public Use
  Company Number: US-BRACCO-006104

PATIENT
  Age: 53 Year
  Sex: Male

DRUGS (2)
  1. MULTIHANCE [Suspect]
     Indication: ANGIOGRAM
     Route: 042
     Dates: start: 20110412, end: 20110412
  2. MULTIHANCE [Suspect]
     Indication: SKIN ULCER
     Route: 042
     Dates: start: 20110412, end: 20110412

REACTIONS (8)
  - NAUSEA [None]
  - HEART RATE INCREASED [None]
  - BLOOD PRESSURE SYSTOLIC INCREASED [None]
  - RESPIRATORY DISTRESS [None]
  - DYSPNOEA [None]
  - RETCHING [None]
  - WHEEZING [None]
  - NASAL CONGESTION [None]
